FAERS Safety Report 5797639-8 (Version None)
Quarter: 2008Q2

REPORT INFORMATION
  Report Type: 
  Country: None (occurrence: None)
  Receive Date: 20080630
  Receipt Date: 20080625
  Transmission Date: 20081010
  Serious: Yes (Death, Hospitalization)
  Sender: FDA-Public Use
  Company Number: 163-21880-08030730

PATIENT
  Age: 84 Year
  Sex: Female

DRUGS (1)
  1. REVLIMID [Suspect]
     Indication: MULTIPLE MYELOMA
     Dosage: 5 MG, 1 IN 2 D, ORAL
     Route: 048
     Dates: start: 20060711, end: 20071231

REACTIONS (3)
  - CARDIO-RESPIRATORY ARREST [None]
  - PATHOLOGICAL FRACTURE [None]
  - POST PROCEDURAL COMPLICATION [None]
